FAERS Safety Report 6856752-4 (Version None)
Quarter: 2010Q3

REPORT INFORMATION
  Report Type: 
  Country: None (occurrence: None)
  Receive Date: 20100719
  Receipt Date: 20100713
  Transmission Date: 20110219
  Serious: Yes (Other)
  Sender: FDA-Public Use
  Company Number: US-B.I. PHARMACEUTICALS,INC./RIDGEFIELD-2010-BP-08008PF

PATIENT
  Sex: Male

DRUGS (3)
  1. SPIRIVA [Suspect]
  2. WELLBUTRIN [Concomitant]
  3. OTHER UNSPECIFIED MEDICATIONS [Concomitant]

REACTIONS (9)
  - ANXIETY [None]
  - FATIGUE [None]
  - FEELING ABNORMAL [None]
  - HYPERTENSION [None]
  - LETHARGY [None]
  - LOSS OF CONSCIOUSNESS [None]
  - MALAISE [None]
  - PAIN [None]
  - SOMNOLENCE [None]
